FAERS Safety Report 23082277 (Version 1)
Quarter: 2023Q4

REPORT INFORMATION
  Report Type: Spontaneous
  Country: CA (occurrence: CA)
  Receive Date: 20231019
  Receipt Date: 20231019
  Transmission Date: 20240110
  Serious: Yes (Hospitalization)
  Sender: FDA-Public Use
  Company Number: CA-ABBVIE-5453696

PATIENT
  Age: 19 Year
  Sex: Male

DRUGS (2)
  1. HUMIRA [Suspect]
     Active Substance: ADALIMUMAB
     Indication: Behcet^s syndrome
     Route: 058
  2. CETIRIZINE HYDROCHLORIDE AND PSEUDOEPHEDRINE HYDROCHLORIDE [Concomitant]
     Active Substance: CETIRIZINE HYDROCHLORIDE\PSEUDOEPHEDRINE HYDROCHLORIDE
     Indication: Product used for unknown indication

REACTIONS (8)
  - Dry skin [Recovering/Resolving]
  - Periorbital swelling [Recovering/Resolving]
  - Gastrointestinal disorder [Recovering/Resolving]
  - Respiratory disorder [Recovering/Resolving]
  - Illness [Recovering/Resolving]
  - Ocular hyperaemia [Recovering/Resolving]
  - Colitis [Recovering/Resolving]
  - Rash [Recovering/Resolving]
